FAERS Safety Report 6213569-1 (Version None)
Quarter: 2009Q2

REPORT INFORMATION
  Report Type: 
  Country: None (occurrence: None)
  Receive Date: 20090601
  Receipt Date: 20090518
  Transmission Date: 20091009
  Serious: Yes (Hospitalization)
  Sender: FDA-Public Use
  Company Number: 1000006495

PATIENT
  Age: 71 Year
  Sex: Female

DRUGS (6)
  1. LEXAPRO [Suspect]
     Dosage: 5 MG (5 MG,1 IN 1 D),ORAL ; 10 MG (10 MG,1 IN 1 D),ORAL
     Route: 048
     Dates: start: 20090114, end: 20090201
  2. LEXAPRO [Suspect]
     Dosage: 5 MG (5 MG,1 IN 1 D),ORAL ; 10 MG (10 MG,1 IN 1 D),ORAL
     Route: 048
     Dates: start: 20090201, end: 20090501
  3. SEROQUEL [Concomitant]
  4. OMEPRAZOL (TABLETS) [Concomitant]
  5. FAMOTIDINE [Concomitant]
  6. METAMUCIL (TABLETS) [Concomitant]

REACTIONS (3)
  - DIZZINESS [None]
  - DRUG WITHDRAWAL SYNDROME [None]
  - LOSS OF CONSCIOUSNESS [None]
